FAERS Safety Report 11919199 (Version 2)
Quarter: 2016Q1

REPORT INFORMATION
  Report Type: Spontaneous
  Country: US (occurrence: US)
  Receive Date: 20160115
  Receipt Date: 20160301
  Transmission Date: 20160526
  Serious: Yes (Other)
  Sender: FDA-Public Use
  Company Number: US-JNJFOC-20151216195

PATIENT
  Age: 68 Year
  Sex: Female

DRUGS (2)
  1. XARELTO [Suspect]
     Active Substance: RIVAROXABAN
     Indication: PRODUCT USED FOR UNKNOWN INDICATION
     Route: 048
     Dates: start: 2015
  2. FISH OIL [Concomitant]
     Active Substance: FISH OIL
     Route: 065

REACTIONS (2)
  - Haemorrhage [Recovered/Resolved]
  - International normalised ratio increased [Unknown]

NARRATIVE: CASE EVENT DATE: 201512
